FAERS Safety Report 8993266 (Version 1)
Quarter: 2013Q1

REPORT INFORMATION
  Report Type: Spontaneous
  Country: US (occurrence: US)
  Receive Date: 20130102
  Receipt Date: 20130102
  Transmission Date: 20140127
  Serious: Yes (Death, Hospitalization, Other)
  Sender: FDA-Public Use
  Company Number: US-PFIZER INC-2012332700

PATIENT
  Sex: Male
  Weight: 72.56 kg

DRUGS (2)
  1. NEURONTIN [Suspect]
     Indication: PARAPLEGIA
     Dosage: UNK
  2. ZANAFLEX [Concomitant]
     Dosage: UNK

REACTIONS (6)
  - Pneumonia [Fatal]
  - Cardiac failure [Fatal]
  - Sepsis [Unknown]
  - Dyspnoea [Unknown]
  - Dysphagia [Unknown]
  - Decubitus ulcer [Unknown]
